FAERS Safety Report 9790308 (Version 1)
Quarter: 2013Q4

REPORT INFORMATION
  Report Type: Report from Study
  Country: US (occurrence: US)
  Receive Date: 20131231
  Receipt Date: 20131231
  Transmission Date: 20140711
  Serious: Yes (Other)
  Sender: FDA-Public Use
  Company Number: US-UCBSA-106855

PATIENT
  Sex: Female

DRUGS (3)
  1. VIMPAT [Suspect]
     Indication: EPILEPSY
     Dosage: DOSE: 600 MG
  2. KEPPRA XR [Suspect]
     Indication: EPILEPSY
     Dosage: DOSE: 2500 MG
  3. NO CONCOMITANT MEDICATION [Concomitant]

REACTIONS (3)
  - Abortion spontaneous incomplete [Unknown]
  - Overdose [Not Recovered/Not Resolved]
  - Pregnancy [Recovered/Resolved]
